FAERS Safety Report 7580269-5 (Version None)
Quarter: 2011Q2

REPORT INFORMATION
  Report Type: 
  Country: None (occurrence: None)
  Receive Date: 20110527
  Receipt Date: 20110323
  Transmission Date: 20111010
  Serious: Yes (Other)
  Sender: FDA-Public Use
  Company Number: US201103006568

PATIENT
  Age: 48 Year
  Sex: Male

DRUGS (3)
  1. BYETTA [Suspect]
     Indication: TYPE 2 DIABETES MELLITUS
     Dosage: 5 UG, BID, SUBCUTANEOUS
     Route: 058
  2. METFORMIN HCL [Concomitant]
  3. ACTOS [Concomitant]

REACTIONS (2)
  - CHOLECYSTECTOMY [None]
  - PANCREATITIS [None]
